FAERS Safety Report 4832195-X (Version None)
Quarter: 2005Q4

REPORT INFORMATION
  Report Type: 
  Country: None (occurrence: None)
  Receive Date: 20051114
  Receipt Date: 20051018
  Transmission Date: 20060501
  Serious: Yes (Death)
  Sender: FDA-Public Use
  Company Number: US-2005-010552

PATIENT
  Age: 38 Year
  Sex: Female
  Weight: 94.33 kg

DRUGS (10)
  1. ILOPROST (ILOPROST AEROSOL (SH L00401N) INHALER [Suspect]
     Indication: PULMONARY HYPERTENSION
     Dosage: 5 UG, 6X/DAY, RESPIRATORY
     Route: 055
     Dates: start: 20041012, end: 20050525
  2. TRACLEER [Concomitant]
  3. COUMADIN [Concomitant]
  4. ALDACTONE [Concomitant]
  5. PROVERA [Concomitant]
  6. CELEXA [Concomitant]
  7. REMERON [Concomitant]
  8. WELLBUTRIN [Concomitant]
  9. REMODULIN (TREPROSTINOL) [Concomitant]
  10. DIGOXIN [Concomitant]

REACTIONS (4)
  - CONDITION AGGRAVATED [None]
  - FALL [None]
  - PULMONARY HYPERTENSION [None]
  - SUDDEN DEATH [None]
